FAERS Safety Report 5153431-9 (Version None)
Quarter: 2006Q4

REPORT INFORMATION
  Report Type: 
  Country: None (occurrence: None)
  Receive Date: 20061117
  Receipt Date: 20061108
  Transmission Date: 20070319
  Serious: Yes (Other)
  Sender: FDA-Public Use
  Company Number: NL-MERCK-0611NLD00013

PATIENT
  Age: 58 Year
  Sex: Female
  Weight: 92 kg

DRUGS (2)
  1. SINGULAIR [Suspect]
     Indication: RESPIRATORY DISORDER
     Route: 048
     Dates: start: 20050515, end: 20060715
  2. FLUTICASONE PROPIONATE AND SALMETEROL XINAFOATE [Suspect]
     Indication: BRONCHITIS CHRONIC
     Dates: start: 20030715

REACTIONS (2)
  - IMMUNE SYSTEM DISORDER [None]
  - PARAESTHESIA [None]
